FAERS Safety Report 4647388-4 (Version None)
Quarter: 2005Q2

REPORT INFORMATION
  Report Type: 
  Country: None (occurrence: None)
  Receive Date: 20050427
  Receipt Date: 20050427
  Transmission Date: 20051028
  Serious: Yes (Hospitalization)
  Sender: FDA-Public Use
  Company Number: None

PATIENT
  Age: 17 Year
  Sex: Female
  Weight: 65.7716 kg

DRUGS (2)
  1. BEXTRA [Suspect]
     Indication: ARTHROPATHY
     Dosage: ORAL
     Route: 048
     Dates: start: 20040303, end: 20040307
  2. BEXTRA [Suspect]
     Indication: INFLAMMATION
     Dosage: ORAL
     Route: 048
     Dates: start: 20040303, end: 20040307

REACTIONS (3)
  - BACK DISORDER [None]
  - NEUROLOGICAL SYMPTOM [None]
  - PAIN [None]
